FAERS Safety Report 15083700 (Version 4)
Quarter: 2019Q3

REPORT INFORMATION
  Report Type: Report from Study
  Country: US (occurrence: US)
  Receive Date: 20180628
  Receipt Date: 20190701
  Transmission Date: 20191004
  Serious: Yes (Other)
  Sender: FDA-Public Use
  Company Number: US-CLOVIS ONCOLOGY-CLO-2018-000659

PATIENT
  Age: 51 Year
  Sex: Female

DRUGS (9)
  1. RUBRACA [Suspect]
     Active Substance: RUCAPARIB CAMSYLATE
     Indication: FALLOPIAN TUBE CANCER
     Dosage: 300 MG, BID
     Dates: start: 20180607
  2. RUBRACA [Suspect]
     Active Substance: RUCAPARIB CAMSYLATE
     Dosage: UNK
  3. TAMOXIFEN [Concomitant]
     Active Substance: TAMOXIFEN
     Indication: PRODUCT USED FOR UNKNOWN INDICATION
     Dosage: 20 MG, QD
  4. RUBRACA [Suspect]
     Active Substance: RUCAPARIB CAMSYLATE
     Indication: OVARIAN CANCER
     Dosage: 600 MG, BID
     Dates: start: 20180521, end: 20180531
  5. RUBRACA [Suspect]
     Active Substance: RUCAPARIB CAMSYLATE
     Dosage: 400 MG, BID
     Route: 048
     Dates: start: 20180525
  6. RUBRACA [Suspect]
     Active Substance: RUCAPARIB CAMSYLATE
     Dosage: 200 MG BID
     Route: 048
     Dates: start: 2018
  7. RUBRACA [Suspect]
     Active Substance: RUCAPARIB CAMSYLATE
     Dosage: 500 MG, BID
     Dates: start: 20180910, end: 201810
  8. ZOLPIDEM [Concomitant]
     Active Substance: ZOLPIDEM TARTRATE
     Indication: PRODUCT USED FOR UNKNOWN INDICATION
     Dosage: 10 MG, HS
  9. RUBRACA [Suspect]
     Active Substance: RUCAPARIB CAMSYLATE
     Dosage: 600 MG, BID
     Route: 048
     Dates: start: 20180525

REACTIONS (19)
  - Neutropenia [Recovered/Resolved]
  - Malaise [Recovered/Resolved]
  - Vomiting [Recovered/Resolved]
  - Nausea [Unknown]
  - Pain [Unknown]
  - Dyspnoea [Recovered/Resolved]
  - Dizziness [Unknown]
  - Anaemia [Recovered/Resolved]
  - Emotional distress [Unknown]
  - Fatigue [Unknown]
  - Depression [Unknown]
  - Thrombocytopenia [Recovered/Resolved]
  - Lymphadenopathy [Unknown]
  - Somnolence [Recovered/Resolved]
  - Computerised tomogram abnormal [Unknown]
  - Malignant neoplasm progression [Not Recovered/Not Resolved]
  - Nail discolouration [Unknown]
  - Anxiety [Unknown]
  - Fatigue [Recovered/Resolved]

NARRATIVE: CASE EVENT DATE: 201805
